FAERS Safety Report 7738710-0 (Version None)
Quarter: 2011Q3

REPORT INFORMATION
  Report Type: 
  Country: None (occurrence: None)
  Receive Date: 20110908
  Receipt Date: 20110902
  Transmission Date: 20111222
  Serious: No
  Sender: FDA-Public Use
  Company Number: PR-PFIZER INC-2004075154

PATIENT

DRUGS (1)
  1. ZITHROMAX [Suspect]
     Route: 042

REACTIONS (1)
  - PHLEBITIS [None]
